FAERS Safety Report 9355547 (Version 8)
Quarter: 2014Q2

REPORT INFORMATION
  Report Type: Spontaneous
  Country: US (occurrence: US)
  Receive Date: 20130619
  Receipt Date: 20140416
  Transmission Date: 20141212
  Serious: Yes (Hospitalization, Disabling, Other)
  Sender: FDA-Public Use
  Company Number: US-PFIZER INC-2013182861

PATIENT
  Age: 61 Year
  Sex: Male
  Weight: 56.69 kg

DRUGS (12)
  1. LYRICA [Suspect]
     Indication: NEURALGIA
     Dosage: 150 MG, 3X/DAY
     Route: 048
  2. LYRICA [Interacting]
     Indication: NEURALGIA
     Dosage: 150 MG, 3X/DAY
     Route: 048
     Dates: end: 2012
  3. LYRICA [Interacting]
     Indication: NEUROPATHY PERIPHERAL
     Dosage: 150 MG, 3X/DAY
  4. LYRICA [Interacting]
     Indication: SPINAL PAIN
  5. LYRICA [Interacting]
     Indication: PAIN IN EXTREMITY
  6. ALCOHOL [Interacting]
  7. PLAVIX [Concomitant]
     Indication: BLOOD DISORDER
     Dosage: UNK
  8. PRAVASTATIN [Concomitant]
     Indication: LIPIDS INCREASED
     Dosage: UNK
  9. VERAPAMIL HYDROCHLORIDE [Concomitant]
     Indication: HYPERTENSION
     Dosage: UNK
  10. FLUCONAZOLE [Concomitant]
     Indication: BENIGN PROSTATIC HYPERPLASIA
     Dosage: UNK
  11. LISINOPRIL [Concomitant]
     Indication: HYPERTENSION
     Dosage: 5MG DAILY
  12. HYDROCHLOROTHIAZIDE [Concomitant]
     Indication: HYPERTENSION
     Dosage: 25MG DAILY

REACTIONS (9)
  - Alcohol interaction [Unknown]
  - Sepsis [Recovered/Resolved]
  - Pharyngitis [Unknown]
  - Chronic obstructive pulmonary disease [Unknown]
  - Blood cholesterol increased [Unknown]
  - Weight decreased [Unknown]
  - Confusional state [Recovered/Resolved]
  - Lethargy [Recovered/Resolved]
  - Drug dispensing error [Unknown]
